FAERS Safety Report 17846697 (Version 1)
Quarter: 2020Q2

REPORT INFORMATION
  Report Type: Spontaneous
  Country: CO (occurrence: CO)
  Receive Date: 20200601
  Receipt Date: 20200601
  Transmission Date: 20200714
  Serious: Yes (Hospitalization, Other)
  Sender: FDA-Public Use
  Company Number: CO-VISTAPHARM, INC.-VER202005-001027

PATIENT
  Age: 66 Year
  Sex: Male

DRUGS (3)
  1. PREDNISOLONE. [Suspect]
     Active Substance: PREDNISOLONE
     Indication: IMMUNOSUPPRESSION
     Dosage: 40 MG/DAY
     Route: 065
  2. TACROLIMUS. [Suspect]
     Active Substance: TACROLIMUS
     Indication: IMMUNOSUPPRESSION
     Dosage: 2 MG/DAY
     Route: 065
  3. AZATHIOPRINE. [Suspect]
     Active Substance: AZATHIOPRINE
     Indication: IMMUNOSUPPRESSION
     Dosage: 100 MG/DAY
     Route: 065

REACTIONS (8)
  - Septic shock [Unknown]
  - Multiple organ dysfunction syndrome [Unknown]
  - Neutropenia [Unknown]
  - Respiratory failure [Unknown]
  - Stupor [Unknown]
  - Systemic inflammatory response syndrome [Unknown]
  - Altered state of consciousness [Unknown]
  - Phaeohyphomycosis [Unknown]
